FAERS Safety Report 6969494-1 (Version None)
Quarter: 2010Q3

REPORT INFORMATION
  Report Type: 
  Country: None (occurrence: None)
  Receive Date: 20100907
  Receipt Date: 20100907
  Transmission Date: 20110219
  Serious: Yes (Hospitalization)
  Sender: FDA-Public Use
  Company Number: None

PATIENT

DRUGS (2)
  1. TAXOTERE [Suspect]
     Dosage: 164 MG
  2. ZOLADEX [Suspect]
     Dosage: 10.8 MG

REACTIONS (1)
  - PNEUMONIA [None]
